FAERS Safety Report 7202364-2 (Version None)
Quarter: 2010Q4

REPORT INFORMATION
  Report Type: 
  Country: None (occurrence: None)
  Receive Date: 20101215
  Receipt Date: 20101129
  Transmission Date: 20110411
  Serious: Yes (Death)
  Sender: FDA-Public Use
  Company Number: 2010005395

PATIENT
  Age: 76 Year
  Sex: Male

DRUGS (11)
  1. ERLOTINIB (ERLOTINIB) (TABLET) (ERLOTINIB) [Suspect]
     Indication: MYELODYSPLASTIC SYNDROME
     Dosage: (150 MG,QD),ORAL
     Route: 048
     Dates: start: 20100929, end: 20101118
  2. CLINDAMYCIN [Concomitant]
  3. DOXYCYCLINE [Concomitant]
  4. OMEPRAZOLE [Concomitant]
  5. SIMVASTATIN [Concomitant]
  6. ACETAMINOPHEN [Concomitant]
  7. EMEND [Concomitant]
  8. EXJADE [Concomitant]
  9. LIPITOR [Concomitant]
  10. ASPIRIN [Concomitant]
  11. PROCHLORPERAZINE MALEATE [Concomitant]

REACTIONS (11)
  - ACTIVATED PARTIAL THROMBOPLASTIN TIME SHORTENED [None]
  - BAND NEUTROPHIL COUNT INCREASED [None]
  - BLOOD ALKALINE PHOSPHATASE DECREASED [None]
  - BLOOD PRESSURE SYSTOLIC INCREASED [None]
  - HAEMATOCRIT DECREASED [None]
  - HAEMOGLOBIN DECREASED [None]
  - MYOCARDIAL ISCHAEMIA [None]
  - PLATELET COUNT DECREASED [None]
  - PROTHROMBIN TIME PROLONGED [None]
  - RED BLOOD CELL COUNT DECREASED [None]
  - SUBDURAL HAEMORRHAGE [None]
